FAERS Safety Report 19099358 (Version 1)
Quarter: 2021Q2

REPORT INFORMATION
  Report Type: Spontaneous
  Country: CA (occurrence: CA)
  Receive Date: 20210406
  Receipt Date: 20210406
  Transmission Date: 20210717
  Serious: Yes (Other)
  Sender: FDA-Public Use
  Company Number: CA-TEVA-2021-CA-1895900

PATIENT
  Sex: Female

DRUGS (1)
  1. PREDNISONE. [Suspect]
     Active Substance: PREDNISONE
     Dosage: 40?60 MG/DAY FOR EQUIVALENT OR MINIMUM OF 14 DAYS
     Route: 048

REACTIONS (7)
  - Symptom recurrence [Unknown]
  - Drug resistance [Unknown]
  - Therapy non-responder [Unknown]
  - Therapeutic product ineffective [Unknown]
  - Steroid withdrawal syndrome [Unknown]
  - Condition aggravated [Unknown]
  - Steroid dependence [Unknown]
